FAERS Safety Report 4928962-4 (Version None)
Quarter: 2006Q1

REPORT INFORMATION
  Report Type: 
  Country: None (occurrence: None)
  Receive Date: 20060301
  Receipt Date: 20060125
  Transmission Date: 20060701
  Serious: Yes (Hospitalization)
  Sender: FDA-Public Use
  Company Number: JP-JPN-A200600350

PATIENT
  Age: 69 Year
  Sex: Female

DRUGS (1)
  1. ZEFIX [Suspect]
     Indication: HEPATITIS B
     Route: 048

REACTIONS (5)
  - ATRIOVENTRICULAR BLOCK COMPLETE [None]
  - CARDIAC SARCOIDOSIS [None]
  - CHEST DISCOMFORT [None]
  - DYSPNOEA [None]
  - IMMUNE RECONSTITUTION SYNDROME [None]
